FAERS Safety Report 15738171 (Version 1)
Quarter: 2018Q4

REPORT INFORMATION
  Report Type: Spontaneous
  Country: US (occurrence: US)
  Receive Date: 20181219
  Receipt Date: 20181219
  Transmission Date: 20190205
  Serious: Yes (Congenital Anomaly, Other)
  Sender: FDA-Public Use
  Company Number: US-ALKEM LABORATORIES LIMITED-US-ALKEM-2018-11113

PATIENT
  Sex: Male
  Weight: 2 kg

DRUGS (5)
  1. FERROUS SULFATE. [Concomitant]
     Active Substance: FERROUS SULFATE
     Indication: PRODUCT USED FOR UNKNOWN INDICATION
     Dosage: UNK
     Route: 064
  2. TACROLIMUS. [Concomitant]
     Active Substance: TACROLIMUS
     Indication: PRODUCT USED FOR UNKNOWN INDICATION
     Dosage: UNK
     Route: 064
  3. OMEPRAZOLE. [Concomitant]
     Active Substance: OMEPRAZOLE
     Indication: PRODUCT USED FOR UNKNOWN INDICATION
     Dosage: UNK
     Route: 064
  4. MYCOPHENOLATE MOFETIL. [Suspect]
     Active Substance: MYCOPHENOLATE MOFETIL
     Indication: PRODUCT USED FOR UNKNOWN INDICATION
     Dosage: UNK
     Route: 064
  5. PREDNISONE. [Concomitant]
     Active Substance: PREDNISONE
     Indication: PRODUCT USED FOR UNKNOWN INDICATION
     Dosage: UNK
     Route: 064

REACTIONS (18)
  - Congenital acrochordon [Unknown]
  - Anomalous pulmonary venous connection [Unknown]
  - Foetal exposure during pregnancy [Unknown]
  - Neonatal respiratory distress [Unknown]
  - Craniofacial deformity [Unknown]
  - Micrognathia [Unknown]
  - Joint ankylosis [Unknown]
  - Heart disease congenital [Unknown]
  - Double outlet right ventricle [Unknown]
  - Mitral valve atresia [Unknown]
  - Microgenia [Unknown]
  - Failure to thrive [Unknown]
  - Pulmonary artery stenosis congenital [Unknown]
  - Microtia [Unknown]
  - Visual impairment [Unknown]
  - Cleft palate [Unknown]
  - External auditory canal atresia [Unknown]
  - Facial asymmetry [Unknown]
